FAERS Safety Report 18593920 (Version 1)
Quarter: 2020Q4

REPORT INFORMATION
  Report Type: Report from Study
  Country: None (occurrence: US)
  Receive Date: 20201209
  Receipt Date: 20201209
  Transmission Date: 20210114
  Serious: Yes (Other)
  Sender: FDA-Public Use
  Company Number: US-ABBVIE-20K-163-3656121-00

PATIENT
  Sex: Female
  Weight: 65.38 kg

DRUGS (1)
  1. HUMIRA [Suspect]
     Active Substance: ADALIMUMAB
     Indication: RHEUMATOID ARTHRITIS
     Route: 058
     Dates: start: 200810

REACTIONS (3)
  - Arthralgia [Recovering/Resolving]
  - Arthralgia [Unknown]
  - Osteoarthritis [Unknown]
